FAERS Safety Report 12248189 (Version 1)
Quarter: 2016Q2

REPORT INFORMATION
  Report Type: Spontaneous
  Country: US (occurrence: None)
  Receive Date: 20160407
  Receipt Date: 20160407
  Transmission Date: 20160815
  Serious: Yes (Hospitalization)
  Sender: FDA-Public Use
  Company Number: None

PATIENT
  Age: 65 Year
  Sex: Male

DRUGS (25)
  1. DIAZEPAM. [Concomitant]
     Active Substance: DIAZEPAM
  2. INLYTA [Suspect]
     Active Substance: AXITINIB
     Indication: RENAL CANCER
     Route: 048
     Dates: start: 20150820
  3. ALPRAZOLAM. [Concomitant]
     Active Substance: ALPRAZOLAM
  4. POT CL MICRO [Concomitant]
  5. METOPROLOL. [Concomitant]
     Active Substance: METOPROLOL
  6. OXYCODONE [Concomitant]
     Active Substance: OXYCODONE
  7. NIFEDIPINE. [Concomitant]
     Active Substance: NIFEDIPINE
  8. ZOLPIDEM [Concomitant]
     Active Substance: ZOLPIDEM\ZOLPIDEM TARTRATE
  9. PANTOPRAZOLE [Concomitant]
     Active Substance: PANTOPRAZOLE SODIUM
  10. LOSARTAN. [Concomitant]
     Active Substance: LOSARTAN
  11. JANUVIA [Concomitant]
     Active Substance: SITAGLIPTIN PHOSPHATE
  12. TEMAZEPAM. [Concomitant]
     Active Substance: TEMAZEPAM
  13. CIALIS [Concomitant]
     Active Substance: TADALAFIL
  14. POT CL MICRO [Concomitant]
  15. HYDROCHLOROT [Concomitant]
     Active Substance: HYDROCHLOROTHIAZIDE
  16. VALSARTAN. [Concomitant]
     Active Substance: VALSARTAN
  17. ACCU-CHEK [Concomitant]
  18. LORAZEPAM. [Concomitant]
     Active Substance: LORAZEPAM
  19. PAROXETINE. [Concomitant]
     Active Substance: PAROXETINE
  20. FENTANYL. [Concomitant]
     Active Substance: FENTANYL
  21. AMOXICILLIN. [Concomitant]
     Active Substance: AMOXICILLIN
  22. INLYTA [Suspect]
     Active Substance: AXITINIB
     Indication: RENAL CANCER
     Dosage: DATES OF USE 03-DEC-2016 - NOT REPORTED
     Route: 048
  23. NEO/POLY/DEX [Concomitant]
     Active Substance: DEXAMETHASONE\NEOMYCIN\POLYMYXIN B SULFATE
  24. PROCHLORPER [Concomitant]
  25. GLIPIZIDE. [Concomitant]
     Active Substance: GLIPIZIDE

REACTIONS (2)
  - Therapy cessation [None]
  - Pancreatitis acute [None]

NARRATIVE: CASE EVENT DATE: 20160302
